FAERS Safety Report 9938023 (Version 1)
Quarter: 2014Q1

REPORT INFORMATION
  Report Type: Spontaneous
  Country: FR (occurrence: FR)
  Receive Date: 20140303
  Receipt Date: 20140303
  Transmission Date: 20141002
  Serious: Yes (Other)
  Sender: FDA-Public Use
  Company Number: FR-009507513-1402FRA012411

PATIENT
  Age: 56 Year
  Sex: Female

DRUGS (4)
  1. AERIUS [Suspect]
     Indication: PREMEDICATION
     Dosage: UNK
     Route: 048
     Dates: start: 20131204, end: 20131205
  2. DOCETAXEL [Suspect]
     Indication: OVARIAN CANCER STAGE III
     Dosage: UNK
     Route: 042
     Dates: start: 20131205, end: 20131205
  3. CARBOPLATIN [Suspect]
     Indication: OVARIAN CANCER STAGE III
     Dosage: UNK
     Route: 042
     Dates: start: 20131205, end: 20131205
  4. METHYLPREDNISOLONE [Suspect]
     Indication: PREMEDICATION
     Dosage: UNK
     Dates: start: 20131204, end: 20131205

REACTIONS (2)
  - Erythema [Recovered/Resolved]
  - Sense of oppression [Recovered/Resolved]
